FAERS Safety Report 17048122 (Version 1)
Quarter: 2019Q4

REPORT INFORMATION
  Report Type: Spontaneous
  Country: US (occurrence: US)
  Receive Date: 20191119
  Receipt Date: 20191119
  Transmission Date: 20200122
  Serious: No
  Sender: FDA-Public Use
  Company Number: US-AMGEN-USASP2019190128

PATIENT
  Age: 62 Year
  Sex: Female

DRUGS (7)
  1. IMODIUM [Concomitant]
     Active Substance: LOPERAMIDE HYDROCHLORIDE
  2. PRILOSEC [Concomitant]
     Active Substance: OMEPRAZOLE MAGNESIUM
  3. XGEVA [Suspect]
     Active Substance: DENOSUMAB
     Indication: PRODUCT USED FOR UNKNOWN INDICATION
     Dosage: UNK
     Route: 065
  4. ZOFRAN [Concomitant]
     Active Substance: ONDANSETRON HYDROCHLORIDE
     Dosage: UNK
  5. CABOMETYX [Suspect]
     Active Substance: CABOZANTINIB S-MALATE
     Indication: RENAL CELL CARCINOMA
     Dosage: 60 MILLIGRAM, QD
     Route: 048
     Dates: start: 20190716, end: 20190903
  6. CABOMETYX [Suspect]
     Active Substance: CABOZANTINIB S-MALATE
     Dosage: 40 MILLIGRAM, QD
     Route: 048
  7. CABOMETYX [Suspect]
     Active Substance: CABOZANTINIB S-MALATE
     Dosage: 40 MILLIGRAM, QD
     Route: 048
     Dates: start: 201909

REACTIONS (17)
  - Oral discomfort [Not Recovered/Not Resolved]
  - Hypertension [Not Recovered/Not Resolved]
  - Diarrhoea [Unknown]
  - Burning sensation [Not Recovered/Not Resolved]
  - Tenderness [Unknown]
  - Skin exfoliation [Unknown]
  - Impaired healing [Unknown]
  - Blister [Recovering/Resolving]
  - Skin fissures [Unknown]
  - Eating disorder [Unknown]
  - Rash [Recovering/Resolving]
  - Blood calcium increased [Recovering/Resolving]
  - Nasal mucosal blistering [Unknown]
  - Dry skin [Unknown]
  - Taste disorder [Unknown]
  - Gait inability [Unknown]
  - Alopecia [Unknown]

NARRATIVE: CASE EVENT DATE: 20190903
